FAERS Safety Report 7482955-4 (Version None)
Quarter: 2011Q2

REPORT INFORMATION
  Report Type: 
  Country: None (occurrence: None)
  Receive Date: 20110516
  Receipt Date: 20110318
  Transmission Date: 20111010
  Serious: No
  Sender: FDA-Public Use
  Company Number: US-BAYER-2011-027342

PATIENT
  Sex: Male
  Weight: 91 kg

DRUGS (3)
  1. ALEVE (CAPLET) [Suspect]
     Indication: MUSCULOSKELETAL PAIN
     Dosage: 2 DF, QD
     Route: 048
  2. ANTIHYPERTENSIVES [Concomitant]
     Dosage: UNK UNK, QD
     Route: 048
  3. CHOLESTEROL- AND TRIGLYCERIDE REDUCERS [Concomitant]
     Dosage: UNK UNK, QD
     Route: 048

REACTIONS (1)
  - NO ADVERSE EVENT [None]
